FAERS Safety Report 24145949 (Version 1)
Quarter: 2024Q3

REPORT INFORMATION
  Report Type: Spontaneous
  Country: GB (occurrence: GB)
  Receive Date: 20240729
  Receipt Date: 20240729
  Transmission Date: 20241017
  Serious: Yes (Disabling, Other)
  Sender: DEXCEL
  Company Number: None

PATIENT
  Age: 45 Year
  Sex: Male
  Weight: 97 kg

DRUGS (3)
  1. DICLOFENAC [Suspect]
     Active Substance: DICLOFENAC
  2. Codine phosphate 30mgCODEINE PHOSPHATE [Concomitant]
     Indication: Analgesic therapy
     Dates: start: 20240714
  3. PREGABALIN [Concomitant]
     Active Substance: PREGABALIN
     Dates: end: 20240715

REACTIONS (2)
  - Muscle spasms [Not Recovered/Not Resolved]
  - Diarrhoea [Not Recovered/Not Resolved]

NARRATIVE: CASE EVENT DATE: 20240715
